FAERS Safety Report 17053707 (Version 1)
Quarter: 2019Q4

REPORT INFORMATION
  Report Type: Spontaneous
  Country: DE (occurrence: DE)
  Receive Date: 20191120
  Receipt Date: 20191120
  Transmission Date: 20200122
  Serious: Yes (Hospitalization, Other)
  Sender: FDA-Public Use
  Company Number: DE-UCBSA-2019043135

PATIENT
  Age: 68 Year
  Sex: Female
  Weight: 54 kg

DRUGS (8)
  1. MAGNESIUM [Concomitant]
     Active Substance: MAGNESIUM
     Indication: MUSCLE SPASMS
  2. VOLON A [TRIAMCINOLONE ACETONIDE] [Concomitant]
  3. VITAMIN B1 [Concomitant]
     Active Substance: THIAMINE HYDROCHLORIDE
     Indication: PRODUCT USED FOR UNKNOWN INDICATION
  4. KEPPRA [Suspect]
     Active Substance: LEVETIRACETAM
     Indication: PRODUCT USED FOR UNKNOWN INDICATION
     Dosage: 500 MILLIGRAM, 2X/DAY (BID)
     Dates: start: 2011
  5. OMEPRAZOLE [OMEPRAZOLE SODIUM] [Concomitant]
     Active Substance: OMEPRAZOLE SODIUM
     Indication: GASTRITIS EROSIVE
  6. VOLTAREN [DICLOFENAC] [Concomitant]
     Active Substance: DICLOFENAC SODIUM
  7. VITAMIN A [RETINOL] [Concomitant]
     Active Substance: RETINOL
     Indication: PRODUCT USED FOR UNKNOWN INDICATION
  8. HYLO PARIN [Concomitant]
     Indication: PRODUCT USED FOR UNKNOWN INDICATION

REACTIONS (15)
  - Seizure [Unknown]
  - Retinal haemorrhage [Unknown]
  - Post procedural complication [Unknown]
  - Somnolence [Unknown]
  - Multiple fractures [Unknown]
  - Hyponatraemia [Recovering/Resolving]
  - Gastritis erosive [Unknown]
  - Fall [Unknown]
  - Vomiting [Unknown]
  - Seroma [Unknown]
  - Hiatus hernia [Unknown]
  - Concussion [Unknown]
  - General physical health deterioration [Unknown]
  - Intraocular pressure decreased [Unknown]
  - Dizziness [Unknown]

NARRATIVE: CASE EVENT DATE: 201302
